FAERS Safety Report 5522486-1 (Version None)
Quarter: 2007Q4

REPORT INFORMATION
  Report Type: 
  Country: None (occurrence: None)
  Receive Date: 20071120
  Receipt Date: 20071113
  Transmission Date: 20080405
  Serious: Yes (Death)
  Sender: FDA-Public Use
  Company Number: TR-ELI_LILLY_AND_COMPANY-TR200711002893

PATIENT
  Sex: Male
  Weight: 45 kg

DRUGS (2)
  1. HUMALOG [Suspect]
     Indication: BLOOD GLUCOSE INCREASED
     Dosage: 3 IU, 6/D
     Route: 058
     Dates: start: 20070623
  2. LANTUS [Concomitant]
     Dosage: UNK, UNKNOWN
     Dates: start: 20070623

REACTIONS (1)
  - DEATH [None]
